FAERS Safety Report 4608580-8 (Version None)
Quarter: 2005Q1

REPORT INFORMATION
  Report Type: 
  Country: None (occurrence: None)
  Receive Date: 20050315
  Receipt Date: 20050303
  Transmission Date: 20050727
  Serious: Yes (Hospitalization)
  Sender: FDA-Public Use
  Company Number: PHNU2005DE01178

PATIENT
  Age: 70 Year
  Sex: Female

DRUGS (3)
  1. METOPROLOL [Concomitant]
  2. DIGOXIN [Concomitant]
  3. BENAZEPRIL HCL [Suspect]
     Indication: HYPERTENSION
     Dosage: 5 MG/DAY
     Route: 065
     Dates: start: 20020101, end: 20020101

REACTIONS (6)
  - ABDOMINAL DISCOMFORT [None]
  - BLOOD BILIRUBIN INCREASED [None]
  - GAMMA-GLUTAMYLTRANSFERASE INCREASED [None]
  - HEPATITIS CHOLESTATIC [None]
  - HEPATOTOXICITY [None]
  - NAUSEA [None]
